FAERS Safety Report 4775973-8 (Version None)
Quarter: 2005Q3

REPORT INFORMATION
  Report Type: 
  Country: None (occurrence: None)
  Receive Date: 20050914
  Receipt Date: 20050317
  Transmission Date: 20060218
  Serious: Yes (Death, Hospitalization)
  Sender: FDA-Public Use
  Company Number: 163-20785-05030487

PATIENT
  Age: 68 Year
  Sex: Female

DRUGS (4)
  1. THALOMID [Suspect]
     Indication: MULTIPLE MYELOMA
     Dosage: 200 MG, DAILY, ORAL
     Route: 048
     Dates: start: 20041001, end: 20050201
  2. MORPHINE [Concomitant]
  3. PRILOSEC [Concomitant]
  4. LASIX [Concomitant]

REACTIONS (4)
  - ASTHENIA [None]
  - DEATH [None]
  - DEHYDRATION [None]
  - DISEASE PROGRESSION [None]
